FAERS Safety Report 6052304-7 (Version None)
Quarter: 2009Q1

REPORT INFORMATION
  Report Type: 
  Country: None (occurrence: None)
  Receive Date: 20090126
  Receipt Date: 20081219
  Transmission Date: 20090719
  Serious: Yes (Disabling)
  Sender: FDA-Public Use
  Company Number: GB-GENENTECH-276023

PATIENT
  Age: 70 Year
  Sex: Female

DRUGS (2)
  1. AVASTIN [Suspect]
     Indication: BREAST CANCER
     Dosage: UNK
     Route: 042
     Dates: start: 20081118
  2. VINORELBINE [Suspect]
     Indication: BREAST CANCER
     Dosage: 50 MG, UNK
     Route: 042
     Dates: start: 20081118

REACTIONS (2)
  - INJECTION SITE IRRITATION [None]
  - PHLEBITIS [None]
